FAERS Safety Report 4940192-9 (Version None)
Quarter: 2006Q1

REPORT INFORMATION
  Report Type: 
  Country: None (occurrence: None)
  Receive Date: 20060310
  Receipt Date: 20060302
  Transmission Date: 20060701
  Serious: Yes (Life-Threatening)
  Sender: FDA-Public Use
  Company Number: FR-ABBOTT-06P-056-0327058-00

PATIENT
  Age: 55 Year
  Sex: Male

DRUGS (19)
  1. KALETRA [Suspect]
     Indication: HIV INFECTION
  2. KALETRA [Suspect]
  3. KALETRA [Suspect]
  4. ZIDOVUDINE [Suspect]
     Indication: HIV INFECTION
  5. ZIDOVUDINE [Suspect]
  6. ZIDOVUDINE [Suspect]
  7. LAMIVUDINE [Suspect]
     Indication: HIV INFECTION
  8. LAMIVUDINE [Suspect]
  9. LAMIVUDINE [Suspect]
  10. ABACAVIR [Suspect]
     Indication: HIV INFECTION
  11. ABACAVIR [Suspect]
  12. ABACAVIR [Suspect]
  13. NEVIRAPINE [Suspect]
     Indication: HIV INFECTION
  14. NEVIRAPINE [Suspect]
  15. NEVIRAPINE [Suspect]
  16. VINBLASTINE [Interacting]
     Indication: DRUG USE FOR UNKNOWN INDICATION
     Route: 042
  17. VINBLASTINE [Interacting]
  18. VINBLASTINE [Interacting]
  19. VINBLASTINE [Interacting]

REACTIONS (2)
  - CASTLEMAN'S DISEASE [None]
  - DRUG INTERACTION [None]
